FAERS Safety Report 8333291-5 (Version None)
Quarter: 2012Q1

REPORT INFORMATION
  Report Type: 
  Country: None (occurrence: None)
  Receive Date: 20120327
  Receipt Date: 20110428
  Transmission Date: 20120608
  Serious: Yes (Death)
  Sender: FDA-Public Use
  Company Number: PHHY2011US19164

PATIENT
  Age: 52 Year
  Sex: Male
  Weight: 65.3 kg

DRUGS (5)
  1. GLEEVEC [Suspect]
     Indication: LIP NEOPLASM MALIGNANT STAGE UNSPECIFIED
     Dosage: 800 MG, QD, ORAL
     Route: 048
  2. SORAFENIB (SORAFENIB) [Suspect]
  3. DILANACIN (DIGOXIN) [Concomitant]
  4. ATUVAN (LORAZEPAM) [Concomitant]
  5. DILANACIN (DIGOXIN) [Concomitant]

REACTIONS (2)
  - NEOPLASM MALIGNANT [None]
  - LIP NEOPLASM MALIGNANT STAGE UNSPECIFIED [None]
